FAERS Safety Report 6576162-7 (Version None)
Quarter: 2010Q1

REPORT INFORMATION
  Report Type: 
  Country: None (occurrence: None)
  Receive Date: 20100209
  Receipt Date: 20100203
  Transmission Date: 20100710
  Serious: Yes (Death)
  Sender: FDA-Public Use
  Company Number: US-GILEAD-2010-0026870

PATIENT
  Sex: Male
  Weight: 99.88 kg

DRUGS (11)
  1. LETAIRIS [Suspect]
     Indication: PULMONARY ARTERIAL HYPERTENSION
     Route: 048
     Dates: start: 20090702
  2. FUROSEMIDE [Concomitant]
  3. SPIRONOLACTONE [Concomitant]
  4. COZAAR [Concomitant]
  5. LIPITOR [Concomitant]
  6. POTASSIUM CHLORIDE [Concomitant]
  7. ALLOPURINOL [Concomitant]
  8. NEXIUM [Concomitant]
  9. GLIPIZIDE [Concomitant]
  10. LIALDA [Concomitant]
  11. IRON [Concomitant]

REACTIONS (1)
  - DEATH [None]
